FAERS Safety Report 9086382 (Version 1)
Quarter: 2013Q1

REPORT INFORMATION
  Report Type: Report from Study
  Country: US (occurrence: US)
  Receive Date: 20130131
  Receipt Date: 20130131
  Transmission Date: 20140127
  Serious: No
  Sender: FDA-Public Use
  Company Number: US-ABBOTT-12P-163-0997294-00

PATIENT
  Sex: Female

DRUGS (1)
  1. HUMIRA [Suspect]
     Indication: RHEUMATOID ARTHRITIS
     Route: 058
     Dates: start: 20120406, end: 20120630

REACTIONS (7)
  - Aspergillus infection [Unknown]
  - Cough [Unknown]
  - Rash macular [Unknown]
  - Dry skin [Unknown]
  - Skin exfoliation [Unknown]
  - Skin infection [Unknown]
  - Respiratory moniliasis [Unknown]
